FAERS Safety Report 7487322-5 (Version None)
Quarter: 2011Q2

REPORT INFORMATION
  Report Type: 
  Country: None (occurrence: None)
  Receive Date: 20110518
  Receipt Date: 20110504
  Transmission Date: 20111010
  Serious: Yes (Other)
  Sender: FDA-Public Use
  Company Number: US-ELI_LILLY_AND_COMPANY-US201002007306

PATIENT
  Sex: Female

DRUGS (9)
  1. FORTEO [Suspect]
     Indication: OSTEOPOROSIS
     Dosage: 20 UG, DAILY (1/D)
     Route: 065
     Dates: start: 20090801
  2. LORTAB [Concomitant]
  3. HIDROXIZIN [Concomitant]
  4. RIFAMPIN [Concomitant]
  5. SIMVASTATIN [Concomitant]
  6. CARVEDILOL [Concomitant]
  7. FORTEO [Suspect]
     Dosage: 20 UG, QD
     Route: 065
  8. VITAMINS [Concomitant]
  9. FORTEO [Suspect]
     Dosage: 20 UG, QD
     Route: 065

REACTIONS (2)
  - ARTHRALGIA [None]
  - CHOLANGITIS SCLEROSING [None]
